FAERS Safety Report 6071207-5 (Version None)
Quarter: 2009Q1

REPORT INFORMATION
  Report Type: 
  Country: None (occurrence: None)
  Receive Date: 20090209
  Receipt Date: 20090204
  Transmission Date: 20090719
  Serious: No
  Sender: FDA-Public Use
  Company Number: US-B.I. PHARMACEUTICALS,INC./RIDGEFIELD-2009-BP-00819BP

PATIENT
  Age: 76 Year
  Sex: Female

DRUGS (8)
  1. SPIRIVA [Suspect]
     Dates: end: 20090118
  2. ADVAIR DISKUS 100/50 [Suspect]
     Route: 055
     Dates: start: 20081119, end: 20090120
  3. PREDNISONE [Concomitant]
     Dosage: 5MG
  4. DIGOXIN [Concomitant]
  5. SYNTHROID [Concomitant]
     Dosage: 50MCG
  6. BUMEX [Concomitant]
     Dosage: 5MG
  7. DIOVAN [Concomitant]
     Dosage: 160MG
  8. AGGRENOX [Concomitant]

REACTIONS (2)
  - PRURITUS [None]
  - RASH MACULO-PAPULAR [None]
